FAERS Safety Report 8028510-9 (Version None)
Quarter: 2012Q1

REPORT INFORMATION
  Report Type: 
  Country: None (occurrence: None)
  Receive Date: 20120104
  Receipt Date: 20111221
  Transmission Date: 20120608
  Serious: Yes (Hospitalization)
  Sender: FDA-Public Use
  Company Number: 2012SP000070

PATIENT
  Age: 55 Year
  Sex: Female

DRUGS (3)
  1. ESCITALOPRAM [Suspect]
     Indication: DEPRESSION
     Dosage: 40 MG; QD
  2. AMITRIPTYLINE HCL [Suspect]
     Indication: DEPRESSION
     Dosage: 75 MG; QD, 25 MG; QD, 60 MG; QD
  3. REMERON [Suspect]
     Indication: DEPRESSION
     Dosage: 15 MG/ QD

REACTIONS (15)
  - DISTURBANCE IN ATTENTION [None]
  - SOMATIC DELUSION [None]
  - ANHEDONIA [None]
  - INSOMNIA [None]
  - MEMORY IMPAIRMENT [None]
  - HYPOCHONDRIASIS [None]
  - NO THERAPEUTIC RESPONSE [None]
  - DEPRESSION [None]
  - ANXIETY [None]
  - DISEASE RECURRENCE [None]
  - APATHY [None]
  - ANGER [None]
  - TARDIVE DYSKINESIA [None]
  - PSYCHOTIC DISORDER [None]
  - REFUSAL OF TREATMENT BY PATIENT [None]
